FAERS Safety Report 5683447-5 (Version None)
Quarter: 2008Q1

REPORT INFORMATION
  Report Type: 
  Country: None (occurrence: None)
  Receive Date: 20080326
  Receipt Date: 20080313
  Transmission Date: 20080703
  Serious: No
  Sender: FDA-Public Use
  Company Number: A-CH2007-16754

PATIENT
  Age: 79 Year
  Sex: Female
  Weight: 59 kg

DRUGS (3)
  1. TRACLEER [Suspect]
     Indication: PULMONARY HYPERTENSION
     Dosage: 125 MG, BID, ORAL : 62.5 MG, BID, ORAL
     Route: 048
     Dates: start: 20060501, end: 20060601
  2. TRACLEER [Suspect]
     Indication: PULMONARY HYPERTENSION
     Dosage: 125 MG, BID, ORAL : 62.5 MG, BID, ORAL
     Route: 048
     Dates: start: 20060601
  3. COUMADIN [Concomitant]

REACTIONS (1)
  - ARTHRALGIA [None]
